FAERS Safety Report 7643801-9 (Version None)
Quarter: 2011Q3

REPORT INFORMATION
  Report Type: 
  Country: None (occurrence: None)
  Receive Date: 20110729
  Receipt Date: 20110720
  Transmission Date: 20111222
  Serious: Yes (Hospitalization, Other)
  Sender: FDA-Public Use
  Company Number: JP-SHIRE-SPV1-2011-00664

PATIENT
  Age: 74 Year
  Sex: Male

DRUGS (12)
  1. FOSRENOL [Suspect]
     Indication: HYPERPHOSPHATAEMIA
     Dosage: 3000 MG, UNKNOWN
     Route: 048
  2. CINACALCET HYDROCHLORIDE [Concomitant]
     Indication: PRODUCT USED FOR UNKNOWN INDICATION
     Dosage: 25 MG, UNKNOWN
     Route: 048
  3. PREDNISOLONE [Suspect]
     Indication: PRODUCT USED FOR UNKNOWN INDICATION
     Dosage: UNK, UNKNOWN
     Route: 048
  4. BIOFERMIN [Concomitant]
     Indication: PRODUCT USED FOR UNKNOWN INDICATION
     Dosage: 3 DF, UNKNOWN
     Route: 048
  5. SELBEX [Concomitant]
     Indication: PRODUCT USED FOR UNKNOWN INDICATION
     Dosage: 150 MG, UNKNOWN
     Route: 048
  6. DETANTOL R [Concomitant]
     Indication: PRODUCT USED FOR UNKNOWN INDICATION
     Dosage: 3 MG, UNKNOWN
     Route: 048
  7. PRECIPITATED CALCIUM CARBONATE [Concomitant]
     Indication: PRODUCT USED FOR UNKNOWN INDICATION
     Dosage: 3000 MG, UNKNOWN
     Route: 048
  8. MUCOSTA [Concomitant]
     Indication: PRODUCT USED FOR UNKNOWN INDICATION
     Dosage: 100 MG, UNKNOWN
     Route: 048
  9. WARFARIN SODIUM [Concomitant]
     Indication: PRODUCT USED FOR UNKNOWN INDICATION
     Dosage: 2 MG, UNKNOWN
     Route: 048
  10. ANTIDIARRHOEIC, ANTIFLATULENT [Concomitant]
     Indication: GASTROENTERITIS VIRAL
     Dosage: UNK, UNKNOWN
     Route: 048
  11. ENALAPRIL MALEATE [Concomitant]
     Indication: PRODUCT USED FOR UNKNOWN INDICATION
     Dosage: 5 MG, UNKNOWN
     Route: 048
  12. ALLOPURINOL [Concomitant]
     Indication: PRODUCT USED FOR UNKNOWN INDICATION
     Dosage: 100 MG, UNKNOWN
     Route: 048

REACTIONS (1)
  - SMALL INTESTINAL PERFORATION [None]
